FAERS Safety Report 26046071 (Version 2)
Quarter: 2025Q4

REPORT INFORMATION
  Report Type: Spontaneous
  Country: EU (occurrence: EU)
  Receive Date: 20251114
  Receipt Date: 20251215
  Transmission Date: 20260117
  Serious: Yes (Hospitalization)
  Sender: ACCORD
  Company Number: EU-Accord-513165

PATIENT
  Age: 5 Year
  Sex: Female
  Weight: 10.9 kg

DRUGS (2)
  1. MYCOPHENOLATE MOFETIL [Suspect]
     Active Substance: MYCOPHENOLATE MOFETIL
     Indication: Immunosuppressant drug therapy
     Route: 048
     Dates: start: 20190717, end: 201911
  2. PROGRAF [Suspect]
     Active Substance: TACROLIMUS
     Indication: Immunosuppressant drug therapy
     Route: 048
     Dates: start: 20190717, end: 201911

REACTIONS (5)
  - Biliary tract infection [Recovering/Resolving]
  - Mucosal ulceration [Recovered/Resolved]
  - Epstein-Barr virus infection [Unknown]
  - Staphylococcal infection [Unknown]
  - Neutropenia [Unknown]

NARRATIVE: CASE EVENT DATE: 20191101
